FAERS Safety Report 24421389 (Version 1)
Quarter: 2024Q4

REPORT INFORMATION
  Report Type: Spontaneous
  Country: US (occurrence: US)
  Receive Date: 20241010
  Receipt Date: 20241010
  Transmission Date: 20250114
  Serious: No
  Sender: BOEHRINGER INGELHEIM
  Company Number: US-Komodo Health-a23aa000003aJFJAA2

PATIENT
  Sex: Female

DRUGS (1)
  1. SPEVIGO [Suspect]
     Active Substance: SPESOLIMAB-SBZO
     Indication: Pyoderma gangrenosum
     Dates: start: 20240930

REACTIONS (1)
  - Intentional product use issue [Unknown]
